FAERS Safety Report 12337652 (Version 1)
Quarter: 2016Q2

REPORT INFORMATION
  Report Type: Spontaneous
  Country: US (occurrence: None)
  Receive Date: 20160504
  Receipt Date: 20160504
  Transmission Date: 20160815
  Serious: No
  Sender: FDA-Public Use
  Company Number: None

PATIENT
  Age: 31 Year
  Sex: Male

DRUGS (5)
  1. LIORESAL [Suspect]
     Active Substance: BACLOFEN
     Indication: MULTIPLE SCLEROSIS
     Dosage: 40MG/20ML INTRATHECAL PUMP
     Route: 037
     Dates: start: 20151118
  2. AVONEX PREFILL KIT [Concomitant]
  3. OXYBUTYNIN ER [Concomitant]
     Active Substance: OXYBUTYNIN
  4. MIRALAX [Concomitant]
     Active Substance: POLYETHYLENE GLYCOL 3350
  5. PREVIDENT [Concomitant]
     Active Substance: SODIUM FLUORIDE

REACTIONS (2)
  - Lower limb fracture [None]
  - Fall [None]

NARRATIVE: CASE EVENT DATE: 201604
